FAERS Safety Report 10522918 (Version 2)
Quarter: 2014Q4

REPORT INFORMATION
  Report Type: Spontaneous
  Country: US (occurrence: None)
  Receive Date: 20141010
  Receipt Date: 20141126
  Transmission Date: 20150528
  Serious: Yes (Other)
  Sender: FDA-Public Use
  Company Number: 201410006

PATIENT
  Age: 63 Year
  Sex: Male

DRUGS (3)
  1. STAXYN (VARDENAFIL HYDROCHLORIDE) [Concomitant]
  2. XIAFLEX [Suspect]
     Active Substance: COLLAGENASE CLOSTRIDIUM HISTOLYTICUM
     Indication: PEYRONIE^S DISEASE
     Dosage: 1 IN 1 D, INTRALESIONAL
     Dates: start: 20140729, end: 20140729
  3. LEVITRA [Concomitant]
     Active Substance: VARDENAFIL HYDROCHLORIDE TRIHYDRATE

REACTIONS (7)
  - Injection site pain [None]
  - Ecchymosis [None]
  - Penile haematoma [None]
  - Injection site bruising [None]
  - Injection site swelling [None]
  - Fracture of penis [None]
  - Painful erection [None]

NARRATIVE: CASE EVENT DATE: 20140909
